FAERS Safety Report 4519932-9 (Version None)
Quarter: 2004Q4

REPORT INFORMATION
  Report Type: 
  Country: None (occurrence: None)
  Receive Date: 20041207
  Receipt Date: 20040608
  Transmission Date: 20050328
  Serious: Yes (Hospitalization)
  Sender: FDA-Public Use
  Company Number: US-ROCHE-370508

PATIENT
  Age: 49 Year
  Sex: Female
  Weight: 84 kg

DRUGS (8)
  1. CAPECITABINE [Suspect]
     Route: 042
     Dates: start: 20031029, end: 20031216
  2. DOCETAXEL [Suspect]
     Route: 042
     Dates: start: 20031029
  3. DECORTIN-H [Concomitant]
     Route: 048
     Dates: start: 20030915, end: 20031215
  4. OSTAC [Concomitant]
     Indication: METASTASES TO BONE
     Route: 048
     Dates: start: 20010315
  5. MADOPAR [Concomitant]
     Route: 048
     Dates: start: 19990915
  6. NEXIUM [Concomitant]
     Indication: PROPHYLAXIS
     Route: 048
  7. GRANISETRON [Concomitant]
     Indication: VOMITING
     Dates: start: 20030615
  8. DEXAMETHASONE [Concomitant]

REACTIONS (4)
  - ASTHENIA [None]
  - HYPERGLYCAEMIA [None]
  - NEUTROPENIA [None]
  - PARAPARESIS [None]
